FAERS Safety Report 12758791 (Version 1)
Quarter: 2016Q3

REPORT INFORMATION
  Report Type: Spontaneous
  Country: US (occurrence: US)
  Receive Date: 20160918
  Receipt Date: 20160918
  Transmission Date: 20161109
  Serious: Yes (Hospitalization)
  Sender: FDA-Public Use
  Company Number: None

PATIENT
  Age: 39 Year
  Sex: Male
  Weight: 130.5 kg

DRUGS (4)
  1. HYOSCYAMINE. [Suspect]
     Active Substance: HYOSCYAMINE
     Indication: GASTROINTESTINAL DISORDER
     Route: 048
     Dates: start: 20160903, end: 20160916
  2. SOMAS [Concomitant]
  3. CLIRITAN [Concomitant]
  4. LORTAB [Concomitant]
     Active Substance: ACETAMINOPHEN\HYDROCODONE BITARTRATE

REACTIONS (7)
  - Dizziness [None]
  - Hypoaesthesia [None]
  - Angina pectoris [None]
  - Dry mouth [None]
  - Hyperhidrosis [None]
  - Chest pain [None]
  - Headache [None]

NARRATIVE: CASE EVENT DATE: 20160911
